FAERS Safety Report 19744839 (Version 2)
Quarter: 2021Q3

REPORT INFORMATION
  Report Type: Spontaneous
  Country: US (occurrence: US)
  Receive Date: 20210825
  Receipt Date: 20210909
  Transmission Date: 20211014
  Serious: No
  Sender: FDA-Public Use
  Company Number: US-LUPIN PHARMACEUTICALS INC.-2021-15552

PATIENT
  Age: 61 Year
  Sex: Female

DRUGS (4)
  1. LEVOTHYROXINE SODIUM TABLETS [Suspect]
     Active Substance: LEVOTHYROXINE SODIUM
     Indication: HYPOTHYROIDISM
     Dosage: UNK (6.5 TABS A WEEK (ONE FULL TAB FOR 6 DAYS AND HALF ON SUNDAY))
     Route: 048
     Dates: start: 20210520
  2. MELATONIN [Concomitant]
     Active Substance: MELATONIN
     Indication: SLEEP DISORDER THERAPY
     Dosage: UNK UNK, QD (HALF, AT NIGHT FROM MONDAY)
     Route: 065
  3. ODACTRA [Concomitant]
     Active Substance: DERMATOPHAGOIDES FARINAE\DERMATOPHAGOIDES PTERONYSSINUS
     Indication: ANTIALLERGIC THERAPY
     Dosage: UNK UNK, QD (ONCE AT NIGHT BEFORE SLEEPING)
     Route: 065
     Dates: start: 202102
  4. VITAMINS [Concomitant]
     Active Substance: VITAMINS
     Indication: PRODUCT USED FOR UNKNOWN INDICATION
     Dosage: UNK
     Route: 065

REACTIONS (2)
  - Product substitution issue [Unknown]
  - Alopecia [Not Recovered/Not Resolved]
